FAERS Safety Report 9682166 (Version 1)
Quarter: 2013Q4

REPORT INFORMATION
  Report Type: Spontaneous
  Country: IT (occurrence: IT)
  Receive Date: 20131111
  Receipt Date: 20131111
  Transmission Date: 20140711
  Serious: Yes (Hospitalization, Other)
  Sender: FDA-Public Use
  Company Number: IT-PFIZER INC-2013318938

PATIENT
  Age: 7 Year
  Sex: Female
  Weight: 26 kg

DRUGS (3)
  1. OTREON [Suspect]
     Indication: PYREXIA
     Dosage: 13 ML (1 IN 1 D)
     Route: 048
     Dates: start: 20130427, end: 20130427
  2. BENTELAN [Concomitant]
     Indication: INFLAMMATION
     Dosage: UNK
     Route: 048
     Dates: start: 20090101, end: 20130428
  3. AUGMENTIN [Concomitant]
     Indication: PYREXIA
     Dosage: UNK
     Route: 048
     Dates: start: 20090101, end: 20130428

REACTIONS (4)
  - Pruritus [Recovered/Resolved]
  - Urticaria [Recovered/Resolved]
  - Blood fibrinogen increased [Unknown]
  - Prothrombin time shortened [Unknown]
